FAERS Safety Report 6696278-4 (Version None)
Quarter: 2010Q2

REPORT INFORMATION
  Report Type: 
  Country: None (occurrence: None)
  Receive Date: 20100421
  Receipt Date: 20100406
  Transmission Date: 20101027
  Serious: Yes (Hospitalization)
  Sender: FDA-Public Use
  Company Number: 1000013218

PATIENT
  Age: 58 Year
  Sex: Male

DRUGS (12)
  1. MILNACIPRAN (MILNACIPRAN HYDROCHLORIDE) [Suspect]
     Indication: DYSTHYMIC DISORDER
     Dosage: 150 MG (150 MG, 1 IN 1 D), ORAL; 200 MG (200 MG, 1 IN 1 D), ORAL
     Route: 048
  2. CITALOPRAM HYDROBROMIDE [Suspect]
     Indication: DYSTHYMIC DISORDER
     Dosage: 20 MG (20 MG, 1 IN 1 D), ORAL; DOSE PROGRESSIVELY DECREASED, ORAL
     Route: 048
  3. NORSET [Suspect]
     Indication: DYSTHYMIC DISORDER
     Dosage: 45 MG (15 MG, 3 IN 1 D), ORAL
     Route: 048
     Dates: start: 20091001
  4. DITROPAN [Concomitant]
  5. PROPRANOLOL [Concomitant]
  6. TRANXENE [Concomitant]
  7. NOCTAMIDE [Concomitant]
  8. DEPAKOTE [Concomitant]
  9. DICETEL [Concomitant]
  10. LACTULOSE [Concomitant]
  11. CHRONO INDOCID [Concomitant]
  12. FORTZAAR [Concomitant]

REACTIONS (7)
  - BLOOD PRESSURE INCREASED [None]
  - CHEST DISCOMFORT [None]
  - DYSPNOEA [None]
  - FAECALOMA [None]
  - HEADACHE [None]
  - HYPERHIDROSIS [None]
  - SEROTONIN SYNDROME [None]
